FAERS Safety Report 24104396 (Version 3)
Quarter: 2024Q3

REPORT INFORMATION
  Report Type: Report from Study
  Country: IL (occurrence: IL)
  Receive Date: 20240717
  Receipt Date: 20240816
  Transmission Date: 20241017
  Serious: Yes (Hospitalization, Other)
  Sender: NOVARTIS
  Company Number: IL-002147023-NVSC2024IL143402

PATIENT
  Age: 23 Year
  Sex: Male
  Weight: 71.2 kg

DRUGS (4)
  1. FABHALTA [Suspect]
     Active Substance: IPTACOPAN HYDROCHLORIDE
     Indication: C3 glomerulopathy
     Dosage: 400 MG
     Route: 048
     Dates: start: 20240609
  2. TACROLIMUS [Concomitant]
     Active Substance: TACROLIMUS
     Indication: Renal transplant
     Dosage: 17 MG, QD
     Route: 065
     Dates: start: 201909, end: 20240707
  3. MYCOPHENOLIC ACID [Concomitant]
     Active Substance: MYCOPHENOLIC ACID
     Indication: Renal transplant
     Dosage: 1440 MG, QD
     Route: 065
     Dates: start: 201909, end: 20240707
  4. PREDNISONE [Concomitant]
     Active Substance: PREDNISONE
     Indication: Renal transplant
     Dosage: 5 MG, QD
     Route: 065
     Dates: start: 201909, end: 20240707

REACTIONS (10)
  - Spontaneous bacterial peritonitis [Recovering/Resolving]
  - Abdominal pain [Recovered/Resolved]
  - Vomiting [Recovered/Resolved]
  - Pyrexia [Unknown]
  - Ascites [Unknown]
  - Leukocytosis [Recovered/Resolved]
  - Neutrophilia [Unknown]
  - C-reactive protein increased [Recovering/Resolving]
  - Blood creatinine increased [Unknown]
  - White blood cell count increased [Unknown]

NARRATIVE: CASE EVENT DATE: 20240707
